FAERS Safety Report 18347840 (Version 1)
Quarter: 2020Q4

REPORT INFORMATION
  Report Type: Spontaneous
  Country: CA (occurrence: CA)
  Receive Date: 20201006
  Receipt Date: 20201006
  Transmission Date: 20210114
  Serious: Yes (Other)
  Sender: FDA-Public Use
  Company Number: CA-ACCORD-204158

PATIENT
  Weight: 2 kg

DRUGS (16)
  1. ONDANSETRON [Suspect]
     Active Substance: ONDANSETRON
     Route: 064
  2. HYDROXYZINE [Suspect]
     Active Substance: HYDROXYZINE HYDROCHLORIDE
     Route: 064
  3. DOXYCYCLINE. [Suspect]
     Active Substance: DOXYCYCLINE
     Dosage: NOT SPECIFIED
     Route: 064
  4. NOVORAPID [Suspect]
     Active Substance: INSULIN ASPART
     Dosage: SOLUTION SUBCUTANEOUS
     Route: 064
  5. DIPHENHYDRAMINE. [Suspect]
     Active Substance: DIPHENHYDRAMINE
     Route: 064
  6. METOCLOPRAMIDE. [Suspect]
     Active Substance: METOCLOPRAMIDE
     Route: 064
  7. ACETYLSALICYLIC ACID [Suspect]
     Active Substance: ASPIRIN
     Indication: HYPEREMESIS GRAVIDARUM
     Dosage: NOT SPECIFIED
     Route: 065
  8. COSYNTROPIN. [Suspect]
     Active Substance: COSYNTROPIN
     Dosage: SUSPENSION INTRAMUSCULAR
     Route: 064
  9. HYDROMORPHONE [Suspect]
     Active Substance: HYDROMORPHONE
     Route: 064
  10. INSULIN HUMAN/INSULIN HUMAN BIOSYNTHETIC/INSULIN HUMAN INJECTION/ISOPH/INSULIN HUMAN ZINC SUSPENSION [Suspect]
     Active Substance: INSULIN HUMAN
     Dosage: NOT SPECIFIED
     Route: 064
  11. OXAZEPAM. [Suspect]
     Active Substance: OXAZEPAM
     Route: 064
  12. PANTOPRAZOLE [Suspect]
     Active Substance: PANTOPRAZOLE
     Dosage: NOT SPECIFIED
     Route: 064
  13. SUMATRIPTAN. [Suspect]
     Active Substance: SUMATRIPTAN
     Dosage: NOT SPECIFIED
     Route: 064
  14. TETRACOSACTIDE/TETRACOSACTIDE ACETATE [Suspect]
     Active Substance: COSYNTROPIN HEXAACETATE
     Route: 064
  15. THIAMINE. [Suspect]
     Active Substance: THIAMINE
     Dosage: NOT SPECIFIED
     Route: 064
  16. ACETYLSALICYLIC ACID [Suspect]
     Active Substance: ASPIRIN
     Dosage: NOT SPECIFIED
     Route: 064

REACTIONS (3)
  - Foetal exposure during pregnancy [Unknown]
  - Foetal growth restriction [Unknown]
  - Hypoglycaemia [Recovered/Resolved]
